FAERS Safety Report 18272732 (Version 1)
Quarter: 2020Q3

REPORT INFORMATION
  Report Type: Spontaneous
  Country: US (occurrence: US)
  Receive Date: 20200916
  Receipt Date: 20200916
  Transmission Date: 20201103
  Serious: Yes (Death)
  Sender: FDA-Public Use
  Company Number: US-ROCHE-2678806

PATIENT
  Sex: Female

DRUGS (1)
  1. ESBRIET [Suspect]
     Active Substance: PIRFENIDONE
     Indication: PULMONARY FIBROSIS
     Dosage: TAKE 1 CAPSULE 3 TIMES DALY X1 WEEK, THEN 2 CAPS 3 TIMES DAILY X1 WEEK, THEN 3 CAPS 3 TIMES DAILY WI
     Route: 048

REACTIONS (1)
  - Death [Fatal]
